FAERS Safety Report 18441457 (Version 2)
Quarter: 2020Q4

REPORT INFORMATION
  Report Type: Spontaneous
  Country: IT (occurrence: IT)
  Receive Date: 20201029
  Receipt Date: 20201202
  Transmission Date: 20210114
  Serious: No
  Sender: FDA-Public Use
  Company Number: IT-TOLMAR, INC.-20IT023416

PATIENT
  Sex: Male

DRUGS (1)
  1. ELIGARD [Suspect]
     Active Substance: LEUPROLIDE ACETATE
     Indication: PROSTATE CANCER
     Dosage: 45 MG, Q 6 MONTH
     Route: 065

REACTIONS (4)
  - Wrong technique in product usage process [Unknown]
  - Device leakage [Unknown]
  - Product physical consistency issue [Unknown]
  - Intercepted product preparation error [Unknown]
